FAERS Safety Report 9026107 (Version 1)
Quarter: 2013Q1

REPORT INFORMATION
  Report Type: Spontaneous
  Country: CH (occurrence: CH)
  Receive Date: 20130122
  Receipt Date: 20130122
  Transmission Date: 20140127
  Serious: Yes (Death, Other)
  Sender: FDA-Public Use
  Company Number: CH-ROCHE-1180876

PATIENT
  Age: 79 Year
  Sex: Male

DRUGS (14)
  1. MABTHERA [Suspect]
     Indication: PRODUCT USED FOR UNKNOWN INDICATION
     Dosage: 2 PER 1 TOTAL
     Route: 042
     Dates: start: 20080226, end: 20080313
  2. METOJECT [Suspect]
     Indication: PRODUCT USED FOR UNKNOWN INDICATION
     Dosage: /MAY/2010
     Route: 065
  3. METOJECT [Suspect]
     Dosage: START DATE:/06/2008  END DATE:04/2010
     Route: 065
  4. PREDNISONE [Suspect]
     Indication: PRODUCT USED FOR UNKNOWN INDICATION
     Route: 065
  5. CYCLOPHOSPHAMIDE [Concomitant]
     Dosage: STARTE DATE: 09/2007 END DATE:03/2008
     Route: 065
  6. PARACETAMOL [Concomitant]
     Route: 065
  7. BACTRIM [Concomitant]
     Route: 065
  8. BACTRIM [Concomitant]
     Route: 065
  9. CORDARONE [Concomitant]
     Route: 065
  10. SINTROM [Concomitant]
  11. NEXIUM [Concomitant]
     Route: 065
  12. LEUCOVORIN [Concomitant]
     Route: 065
  13. CALCIMAGON-D3 [Concomitant]
     Route: 065
  14. FOSAMAX [Concomitant]
     Route: 065

REACTIONS (4)
  - Bacterial infection [Recovered/Resolved with Sequelae]
  - Colitis [Fatal]
  - Urinary tract infection [Fatal]
  - Clostridial infection [Recovered/Resolved]
